FAERS Safety Report 9832318 (Version 1)
Quarter: 2014Q1

REPORT INFORMATION
  Report Type: Spontaneous
  Country: AU (occurrence: AU)
  Receive Date: 20140121
  Receipt Date: 20140121
  Transmission Date: 20141002
  Serious: Yes (Other)
  Sender: FDA-Public Use
  Company Number: AU-BAYER-2014-005387

PATIENT
  Sex: Female

DRUGS (2)
  1. YASMIN [Suspect]
  2. YAZ [Suspect]

REACTIONS (1)
  - Heart injury [None]
